FAERS Safety Report 7320613-7 (Version None)
Quarter: 2011Q1

REPORT INFORMATION
  Report Type: 
  Country: None (occurrence: None)
  Receive Date: 20110228
  Receipt Date: 20110214
  Transmission Date: 20110831
  Serious: Yes (Other)
  Sender: FDA-Public Use
  Company Number: PHHY2011US01959

PATIENT
  Sex: Female
  Weight: 48.98 kg

DRUGS (12)
  1. SEROQUEL [Concomitant]
     Dosage: 100 MG, UNK
  2. FUROSEMIDE [Concomitant]
     Dosage: 20 MG, UNK
  3. PLAVIX [Concomitant]
     Dosage: 75 MG, UNK
  4. VITAMIN B-12 [Concomitant]
  5. CALCIUM [Concomitant]
     Dosage: UNK
  6. CITALOPRAM HYDROBROMIDE [Concomitant]
     Dosage: 20 MG, UNK
  7. EXELON [Suspect]
     Dosage: 4.6 MG, QD
     Route: 062
     Dates: start: 20101101, end: 20110101
  8. SIMVASTATIN [Concomitant]
     Dosage: 20 MG, UNK
  9. MUTIVITAMIN [Concomitant]
  10. VITAMIN D [Concomitant]
  11. DOXYCYCLINE [Concomitant]
     Dosage: 100 MG, UNK
  12. NAMENDA [Concomitant]
     Dosage: 10 MG, UNK

REACTIONS (2)
  - WEIGHT INCREASED [None]
  - HYPERGLYCAEMIA [None]
